FAERS Safety Report 25941676 (Version 1)
Quarter: 2025Q4

REPORT INFORMATION
  Report Type: Report from Study
  Country: US (occurrence: US)
  Receive Date: 20251020
  Receipt Date: 20251020
  Transmission Date: 20260118
  Serious: Yes (Other)
  Sender: MYLAN
  Company Number: US-MYLANLABS-2025M1087702

PATIENT

DRUGS (4)
  1. PHENTOLAMINE [Suspect]
     Active Substance: PHENTOLAMINE
     Indication: Product used for unknown indication
     Dosage: UNK
  2. PHENTOLAMINE [Suspect]
     Active Substance: PHENTOLAMINE
     Dosage: UNK
     Route: 065
  3. PHENTOLAMINE [Suspect]
     Active Substance: PHENTOLAMINE
     Dosage: UNK
     Route: 065
  4. PHENTOLAMINE [Suspect]
     Active Substance: PHENTOLAMINE
     Dosage: UNK

REACTIONS (1)
  - Lung neoplasm malignant [Not Recovered/Not Resolved]

NARRATIVE: CASE EVENT DATE: 20250904
